FAERS Safety Report 25762578 (Version 2)
Quarter: 2025Q3

REPORT INFORMATION
  Report Type: Spontaneous
  Country: GB (occurrence: GB)
  Receive Date: 20250904
  Receipt Date: 20250926
  Transmission Date: 20251021
  Serious: Yes (Hospitalization)
  Sender: TEVA
  Company Number: GB-TEVA-VS-3367528

PATIENT
  Age: 32 Year
  Sex: Female

DRUGS (3)
  1. PREDNISOLONE [Suspect]
     Active Substance: PREDNISOLONE
     Indication: Systemic lupus erythematosus
     Route: 065
  2. HYDROXYCHLOROQUINE [Suspect]
     Active Substance: HYDROXYCHLOROQUINE
     Indication: Systemic lupus erythematosus
     Route: 065
  3. AZATHIOPRINE [Suspect]
     Active Substance: AZATHIOPRINE
     Indication: Systemic lupus erythematosus
     Route: 065

REACTIONS (6)
  - Neutropenic sepsis [Recovered/Resolved]
  - Maternal exposure during pregnancy [Unknown]
  - Pneumonia streptococcal [Recovered/Resolved]
  - Geotrichum infection [Recovered/Resolved]
  - Fungal infection [Recovered/Resolved]
  - Drug ineffective [Unknown]
